FAERS Safety Report 7023787-0 (Version None)
Quarter: 2010Q4

REPORT INFORMATION
  Report Type: 
  Country: None (occurrence: None)
  Receive Date: 20101001
  Receipt Date: 20100920
  Transmission Date: 20110411
  Serious: Yes (Hospitalization, Other)
  Sender: FDA-Public Use
  Company Number: FR-KINGPHARMUSA00001-K201001188

PATIENT
  Age: 68 Year
  Sex: Male

DRUGS (10)
  1. ALTACE [Suspect]
     Indication: HYPERTENSION
     Dosage: 5 MG, QD
     Route: 048
     Dates: start: 20100101, end: 20100201
  2. ALTACE [Suspect]
     Dosage: 5 MG, QD
     Dates: start: 20100202, end: 20100101
  3. OFLOXACINE MERCK [Suspect]
     Indication: KLEBSIELLA INFECTION
     Dosage: UNK
     Dates: start: 20100201, end: 20100201
  4. KARDEGIC [Concomitant]
     Dosage: 160 MG, QD
  5. PLAVIX [Concomitant]
     Dosage: 75 MG, QD
  6. ESOMEPRAZOLE [Concomitant]
     Dosage: 20 MG, QD
  7. ELISOR [Concomitant]
     Dosage: 20 MG, QD
  8. TENORMIN [Concomitant]
     Dosage: 50 MG, QD
  9. IMOVANE [Concomitant]
     Dosage: UNK, QD
  10. EFFERALGAN CODEINE [Concomitant]
     Dosage: UNK

REACTIONS (5)
  - BLOOD CREATININE INCREASED [None]
  - GENERAL PHYSICAL HEALTH DETERIORATION [None]
  - GLOMERULAR FILTRATION RATE DECREASED [None]
  - PNEUMONIA KLEBSIELLA [None]
  - RENAL FAILURE ACUTE [None]
